FAERS Safety Report 23576826 (Version 1)
Quarter: 2024Q1

REPORT INFORMATION
  Report Type: Report from Study
  Country: EG (occurrence: None)
  Receive Date: 20240228
  Receipt Date: 20240228
  Transmission Date: 20240409
  Serious: Yes (Other)
  Sender: FDA-Public Use
  Company Number: 2024A046287

PATIENT
  Sex: Female

DRUGS (1)
  1. LYNPARZA [Suspect]
     Active Substance: OLAPARIB
     Indication: Adjuvant therapy
     Route: 048
     Dates: start: 20231216

REACTIONS (2)
  - Cerebrovascular accident [Unknown]
  - Bell^s palsy [Unknown]
